FAERS Safety Report 19722857 (Version 1)
Quarter: 2021Q3

REPORT INFORMATION
  Report Type: Spontaneous
  Country: FR (occurrence: FR)
  Receive Date: 20210819
  Receipt Date: 20210819
  Transmission Date: 20211014
  Serious: Yes (Other)
  Sender: FDA-Public Use
  Company Number: FR-TEVA-2021-FR-1942020

PATIENT
  Age: 40 Year
  Sex: Male

DRUGS (2)
  1. 3?MMC [Suspect]
     Active Substance: 3-METHYLMETHCATHINONE
     Route: 065
  2. PREGABALINE [Suspect]
     Active Substance: PREGABALIN
     Route: 065

REACTIONS (4)
  - Drug abuse [Unknown]
  - Altered state of consciousness [Recovered/Resolved]
  - Disorientation [Recovered/Resolved]
  - Miosis [Recovered/Resolved]
